FAERS Safety Report 21543448 (Version 1)
Quarter: 2022Q4

REPORT INFORMATION
  Report Type: Spontaneous
  Country: AR (occurrence: AR)
  Receive Date: 20221102
  Receipt Date: 20221102
  Transmission Date: 20230112
  Serious: Yes (Hospitalization, Other)
  Sender: FDA-Public Use
  Company Number: AR-PFIZER INC-PV202200091560

PATIENT
  Age: 51 Year
  Sex: Male

DRUGS (1)
  1. ADALIMUMAB [Suspect]
     Active Substance: ADALIMUMAB
     Dosage: 40 MG, EVERY 15 DAYS
     Route: 058
     Dates: start: 202203

REACTIONS (2)
  - Mycobacterium marinum infection [Unknown]
  - Oral candidiasis [Unknown]
